FAERS Safety Report 8608370-5 (Version None)
Quarter: 2012Q3

REPORT INFORMATION
  Report Type: 
  Country: None (occurrence: None)
  Receive Date: 20120821
  Receipt Date: 20120814
  Transmission Date: 20120928
  Serious: Yes (Hospitalization)
  Sender: FDA-Public Use
  Company Number: US-UCBSA-063045

PATIENT
  Sex: Male

DRUGS (3)
  1. VIMPAT [Suspect]
     Indication: CONVULSION
  2. DEPAKOTE [Suspect]
  3. KEPPRA [Suspect]

REACTIONS (2)
  - HOSPITALISATION [None]
  - WHITE BLOOD CELL COUNT DECREASED [None]
